FAERS Safety Report 18657477 (Version 1)
Quarter: 2020Q4

REPORT INFORMATION
  Report Type: Not Available
  Country: JP (occurrence: JP)
  Receive Date: 20201223
  Receipt Date: 20201223
  Transmission Date: 20210114
  Serious: Yes (Life-Threatening, Hospitalization, Other)
  Sender: FDA-Public Use
  Company Number: US-AKORN-158000

PATIENT
  Age: 73 Year
  Sex: Male

DRUGS (1)
  1. FENTANYL CITRATE INJECTION, USP CII [Suspect]
     Active Substance: FENTANYL CITRATE

REACTIONS (3)
  - Overdose [Recovered/Resolved]
  - Loss of consciousness [Recovered/Resolved]
  - Hypoalbuminaemia [Unknown]
